FAERS Safety Report 25167794 (Version 1)
Quarter: 2025Q2

REPORT INFORMATION
  Report Type: Spontaneous
  Country: US (occurrence: None)
  Receive Date: 20250405
  Receipt Date: 20250405
  Transmission Date: 20250717
  Serious: Yes (Hospitalization)
  Sender: FDA-CTU
  Company Number: None

PATIENT
  Age: 70 Year
  Sex: Female

DRUGS (1)
  1. TECLISTAMAB [Suspect]
     Active Substance: TECLISTAMAB
     Dates: start: 20240321

REACTIONS (4)
  - Immune effector cell-associated neurotoxicity syndrome [None]
  - Lethargy [None]
  - Chills [None]
  - Facial paralysis [None]

NARRATIVE: CASE EVENT DATE: 20240322
